FAERS Safety Report 7487329-8 (Version None)
Quarter: 2011Q2

REPORT INFORMATION
  Report Type: 
  Country: None (occurrence: None)
  Receive Date: 20110518
  Receipt Date: 20110504
  Transmission Date: 20111010
  Serious: Yes (Hospitalization)
  Sender: FDA-Public Use
  Company Number: US-ELI_LILLY_AND_COMPANY-US201103008440

PATIENT
  Sex: Female

DRUGS (14)
  1. FORTEO [Suspect]
     Dosage: 20 UG, QD
  2. VITAMIN D [Concomitant]
  3. FOLIC ACID [Concomitant]
     Dosage: 1 MG, QD
  4. ASPIRIN [Concomitant]
     Dosage: 81 MG, QD
  5. FORTEO [Suspect]
     Dosage: 20 UG, QD
  6. GLYBURIDE [Concomitant]
     Dosage: 2.5 MG, QD
  7. CALCIUM CARBONATE [Concomitant]
  8. FORTEO [Suspect]
     Indication: OSTEOPOROSIS
     Dosage: 20 UG, QD
     Route: 065
     Dates: start: 20110127
  9. METOPROLOL SUCCINATE [Concomitant]
     Dosage: 25 MG, BID
  10. METFORMIN HCL [Concomitant]
  11. DIOVAN [Concomitant]
  12. FERROUS SULFATE TAB [Concomitant]
  13. CRESTOR [Concomitant]
  14. PREDNISONE [Concomitant]
     Dosage: 5 MG, QD

REACTIONS (6)
  - FALL [None]
  - ARTHRALGIA [None]
  - MEDICATION ERROR [None]
  - DIARRHOEA [None]
  - CONSTIPATION [None]
  - JOINT DISLOCATION [None]
